FAERS Safety Report 6471667-1 (Version None)
Quarter: 2009Q4

REPORT INFORMATION
  Report Type: 
  Country: None (occurrence: None)
  Receive Date: 20091203
  Receipt Date: 20080414
  Transmission Date: 20100525
  Serious: Yes (Hospitalization, Other)
  Sender: FDA-Public Use
  Company Number: US-ELI_LILLY_AND_COMPANY-US200803002113

PATIENT
  Sex: Female

DRUGS (14)
  1. FORTEO [Suspect]
     Indication: OSTEOPOROSIS
     Dosage: 20 UG, DAILY (1/D)
     Dates: start: 20060101
  2. PREDNISONE [Concomitant]
  3. NEURONTIN [Concomitant]
  4. HYDROCODONE [Concomitant]
  5. PRANDIN [Concomitant]
  6. DIAZIDE [Concomitant]
  7. LANOXIN [Concomitant]
  8. ZOCOR [Concomitant]
  9. SYNTHROID [Concomitant]
  10. PRILOSEC [Concomitant]
  11. COZAAR [Concomitant]
  12. TOPROL-XL [Concomitant]
  13. FENTANYL [Concomitant]
     Route: 062
  14. LORTAB [Concomitant]

REACTIONS (5)
  - ARTHRITIS [None]
  - ASTHENIA [None]
  - BODY TEMPERATURE INCREASED [None]
  - INFLUENZA [None]
  - SYNCOPE [None]
